FAERS Safety Report 15125769 (Version 1)
Quarter: 2018Q3

REPORT INFORMATION
  Report Type: Report from Study
  Country: US (occurrence: US)
  Receive Date: 20180710
  Receipt Date: 20180710
  Transmission Date: 20181010
  Serious: Yes (Other)
  Sender: FDA-Public Use
  Company Number: US-ALEXION PHARMACEUTICALS INC.-A201808682

PATIENT
  Sex: Male

DRUGS (3)
  1. SOLIRIS [Suspect]
     Active Substance: ECULIZUMAB
     Indication: PAROXYSMAL NOCTURNAL HAEMOGLOBINURIA
     Dosage: UNK
     Route: 065
  2. SOLIRIS [Suspect]
     Active Substance: ECULIZUMAB
     Dosage: UNK, Q2W
     Route: 065
  3. AZACITIDINE. [Suspect]
     Active Substance: AZACITIDINE
     Indication: PRODUCT USED FOR UNKNOWN INDICATION
     Dosage: UNK
     Route: 065

REACTIONS (12)
  - Hypokalaemia [Recovered/Resolved]
  - Hypomagnesaemia [Recovered/Resolved]
  - Constipation [Recovered/Resolved]
  - Renal cyst [Unknown]
  - Immune thrombocytopenic purpura [Unknown]
  - Blood creatinine increased [Unknown]
  - Urticaria [Recovered/Resolved]
  - Haemorrhage [Recovered/Resolved]
  - Cytopenia [Recovered/Resolved]
  - Dehydration [Recovered/Resolved]
  - Lip swelling [Recovered/Resolved]
  - Mucosal inflammation [Recovered/Resolved]
